FAERS Safety Report 22313600 (Version 2)
Quarter: 2023Q2

REPORT INFORMATION
  Report Type: Spontaneous
  Country: US (occurrence: US)
  Receive Date: 20230512
  Receipt Date: 20230525
  Transmission Date: 20230721
  Serious: Yes (Other)
  Sender: FDA-Public Use
  Company Number: US-PFIZER INC-PV202300082388

PATIENT
  Age: 54 Year
  Sex: Female

DRUGS (1)
  1. HEPARIN SODIUM [Suspect]
     Active Substance: HEPARIN SODIUM
     Indication: Thrombotic thrombocytopenic purpura
     Dosage: UNK

REACTIONS (3)
  - Heparin-induced thrombocytopenia [Recovering/Resolving]
  - Haemolytic uraemic syndrome [Recovering/Resolving]
  - Off label use [Unknown]
